FAERS Safety Report 9743430 (Version 3)
Quarter: 2013Q4

REPORT INFORMATION
  Report Type: Spontaneous
  Country: US (occurrence: US)
  Receive Date: 20131210
  Receipt Date: 20131212
  Transmission Date: 20140711
  Serious: No
  Sender: FDA-Public Use
  Company Number: US-TEVA-382208USA

PATIENT
  Age: 33 Year
  Sex: Female
  Weight: 71.28 kg

DRUGS (13)
  1. PARAGARD 380A [Suspect]
     Indication: CONTRACEPTION
     Route: 015
     Dates: start: 20120611
  2. RANITIDINE [Concomitant]
  3. HYDROCHLOROTHIAZIDE [Concomitant]
  4. METOPROLOL [Concomitant]
  5. STRATTERA [Concomitant]
  6. HYOSCYAMINE [Concomitant]
  7. DEXAMETHASONE [Concomitant]
  8. OMEPRAZOLE [Concomitant]
  9. LORAZEPAM [Concomitant]
  10. EFFEXOR [Concomitant]
  11. BUSPAR [Concomitant]
  12. IBUPROFEN [Concomitant]
  13. NTG [Concomitant]

REACTIONS (6)
  - Asthenia [Not Recovered/Not Resolved]
  - Fatigue [Not Recovered/Not Resolved]
  - Menorrhagia [Not Recovered/Not Resolved]
  - Dysmenorrhoea [Not Recovered/Not Resolved]
  - Dizziness [Unknown]
  - Metrorrhagia [Unknown]
